FAERS Safety Report 7321185-3 (Version None)
Quarter: 2011Q1

REPORT INFORMATION
  Report Type: 
  Country: None (occurrence: None)
  Receive Date: 20110228
  Receipt Date: 20110223
  Transmission Date: 20110831
  Serious: Yes (Hospitalization, Other)
  Sender: FDA-Public Use
  Company Number: US-PFIZER INC-2006124566

PATIENT
  Sex: Female

DRUGS (8)
  1. LIPITOR [Suspect]
     Dosage: 40 MG, 1X/DAY
     Dates: start: 20040801, end: 20041101
  2. LIPITOR [Suspect]
     Dosage: UNK
     Dates: start: 20090101
  3. ASA [Concomitant]
     Dosage: UNK
  4. SYNTHROID [Concomitant]
     Indication: HYPOTHYROIDISM
     Dosage: UNK MG, UNK
  5. ZOCOR [Concomitant]
     Dosage: 20 MG, UNK
  6. FOSAMAX [Concomitant]
     Indication: OSTEOPENIA
     Dosage: 35 MG, UNK
  7. METOPROLOL [Concomitant]
     Indication: HYPERTENSION
     Dosage: 50 MG, UNK
  8. HYZAAR [Concomitant]
     Dosage: UNK

REACTIONS (8)
  - COGNITIVE DISORDER [None]
  - IRRITABILITY [None]
  - DEPRESSION [None]
  - NEUROPATHY PERIPHERAL [None]
  - DISORIENTATION [None]
  - AMNESIA [None]
  - BALANCE DISORDER [None]
  - FATIGUE [None]
